FAERS Safety Report 5471206-8 (Version None)
Quarter: 2007Q3

REPORT INFORMATION
  Report Type: 
  Country: None (occurrence: None)
  Receive Date: 20070928
  Receipt Date: 20070913
  Transmission Date: 20080115
  Serious: No
  Sender: FDA-Public Use
  Company Number: A0665374A

PATIENT
  Sex: Female

DRUGS (4)
  1. FLOVENT [Suspect]
     Indication: ASTHMA
     Dosage: 1PUFF TWICE PER DAY
     Route: 055
  2. ASPIRIN [Concomitant]
  3. MOTRIN [Concomitant]
  4. LODINE [Concomitant]

REACTIONS (2)
  - PHARMACEUTICAL PRODUCT COMPLAINT [None]
  - WHEEZING [None]
